FAERS Safety Report 17265344 (Version 1)
Quarter: 2020Q1

REPORT INFORMATION
  Report Type: Spontaneous
  Country: TR (occurrence: TR)
  Receive Date: 20200114
  Receipt Date: 20200114
  Transmission Date: 20200409
  Serious: Yes (Other)
  Sender: FDA-Public Use
  Company Number: TR-ROCHE-2353989

PATIENT
  Age: 65 Year
  Sex: Male
  Weight: 75 kg

DRUGS (1)
  1. RITUXIMAB. [Suspect]
     Active Substance: RITUXIMAB
     Indication: DIFFUSE LARGE B-CELL LYMPHOMA
     Route: 065

REACTIONS (6)
  - Cytopenia [Unknown]
  - Unevaluable event [Unknown]
  - Pneumonia [Unknown]
  - Infection [Unknown]
  - Diffuse large B-cell lymphoma recurrent [Unknown]
  - Febrile neutropenia [Unknown]
